FAERS Safety Report 15759362 (Version 1)
Quarter: 2018Q4

REPORT INFORMATION
  Report Type: Spontaneous
  Country: US (occurrence: US)
  Receive Date: 20181226
  Receipt Date: 20181226
  Transmission Date: 20190205
  Serious: No
  Sender: FDA-Public Use
  Company Number: US-AUROBINDO-AUR-APU-2018-042435

PATIENT

DRUGS (1)
  1. BUPIVACAINE HYDROCHLORIDE INJECTION USP 0.75% (7.5 MG/ML) [Suspect]
     Active Substance: BUPIVACAINE HYDROCHLORIDE
     Indication: SPINAL ANAESTHESIA
     Dosage: UNK
     Route: 065

REACTIONS (1)
  - Off label use [Unknown]
